FAERS Safety Report 12255136 (Version 2)
Quarter: 2016Q2

REPORT INFORMATION
  Report Type: Spontaneous
  Country: NL (occurrence: NL)
  Receive Date: 20160411
  Receipt Date: 20160415
  Transmission Date: 20160815
  Serious: Yes (Other)
  Sender: FDA-Public Use
  Company Number: PHHY2016NL045491

PATIENT
  Age: 85 Year
  Sex: Female
  Weight: 55 kg

DRUGS (2)
  1. SULFAMETHOXAZOLE AND TRIMETHOPRIM [Interacting]
     Active Substance: SULFAMETHOXAZOLE\TRIMETHOPRIM
     Indication: STAPHYLOCOCCAL INFECTION
     Dosage: 1 DF, BID, 2 KEER PER DAG 1 STUK(S)
     Route: 048
     Dates: start: 20160316, end: 20160324
  2. RIFAMPICIN [Suspect]
     Active Substance: RIFAMPIN
     Indication: STAPHYLOCOCCAL INFECTION
     Dosage: 600 MG, BID, 2 KEER PER DAG 2 STUK(S)
     Route: 048
     Dates: start: 20160316, end: 20160324

REACTIONS (1)
  - Inappropriate antidiuretic hormone secretion [Recovered/Resolved]

NARRATIVE: CASE EVENT DATE: 20160324
